FAERS Safety Report 10070948 (Version 1)
Quarter: 2014Q2

REPORT INFORMATION
  Report Type: Spontaneous
  Country: US (occurrence: US)
  Receive Date: 20140410
  Receipt Date: 20140410
  Transmission Date: 20141212
  Serious: Yes (Hospitalization)
  Sender: FDA-Public Use
  Company Number: US-GLAXOSMITHKLINE-A1067500A

PATIENT
  Age: 67 Year
  Sex: Female

DRUGS (2)
  1. MEPRON [Suspect]
     Indication: PRODUCT USED FOR UNKNOWN INDICATION
     Dosage: 10ML PER DAY
     Route: 048
  2. UNKNOWN [Concomitant]

REACTIONS (1)
  - Bone marrow transplant [Unknown]
